FAERS Safety Report 4407399-0 (Version None)
Quarter: 2004Q3

REPORT INFORMATION
  Report Type: 
  Country: None (occurrence: None)
  Receive Date: 20040723
  Receipt Date: 20040723
  Transmission Date: 20050211
  Serious: Yes (Hospitalization)
  Sender: FDA-Public Use
  Company Number: None

PATIENT
  Weight: 87.5442 kg

DRUGS (11)
  1. LISINOPRIL [Suspect]
     Indication: HYPERTENSION
     Dosage: 20 MG QD PO
     Route: 048
  2. DIOVAN [Concomitant]
  3. NORVASC [Concomitant]
  4. MINOXIDIL [Concomitant]
  5. AMARYL [Concomitant]
  6. CITALOPRAM [Concomitant]
  7. LIPITOR [Concomitant]
  8. TORSEMIDE [Concomitant]
  9. LUMIGAN OPTH [Concomitant]
  10. HEMOCYTE [Concomitant]
  11. TRAZODONE HCL [Concomitant]

REACTIONS (1)
  - BLOOD POTASSIUM INCREASED [None]
